FAERS Safety Report 7343838-3 (Version None)
Quarter: 2011Q1

REPORT INFORMATION
  Report Type: 
  Country: None (occurrence: None)
  Receive Date: 20110310
  Receipt Date: 20110304
  Transmission Date: 20110831
  Serious: Yes (Other)
  Sender: FDA-Public Use
  Company Number: US-ROCHE-757946

PATIENT
  Sex: Male
  Weight: 111.4 kg

DRUGS (11)
  1. CELLCEPT [Suspect]
     Route: 065
  2. SULFAMETHOXAZOLE [Suspect]
     Route: 065
  3. PROCRIT [Suspect]
     Route: 058
     Dates: start: 20091201, end: 20100202
  4. PROCRIT [Suspect]
     Dosage: 20000 UNITS
     Route: 058
     Dates: start: 20110127
  5. ALLOPURINOL [Suspect]
     Route: 065
  6. PROCRIT [Suspect]
     Indication: NEPHROGENIC ANAEMIA
     Route: 058
     Dates: start: 20090608, end: 20091201
  7. PROCRIT [Suspect]
     Route: 058
     Dates: start: 20100202, end: 20101120
  8. TRIMETHOPRIM [Suspect]
     Route: 065
  9. VALCYTE [Suspect]
     Route: 065
     Dates: start: 20100501, end: 20101215
  10. MYCOPHENOLATE MOFETIL [Suspect]
     Route: 065
  11. NEORAL [Concomitant]
     Indication: IMMUNOSUPPRESSANT DRUG THERAPY

REACTIONS (3)
  - GASTROINTESTINAL HAEMORRHAGE [None]
  - ANTI-ERYTHROPOIETIN ANTIBODY NEGATIVE [None]
  - HYPERPARATHYROIDISM [None]
